FAERS Safety Report 13098018 (Version 2)
Quarter: 2017Q2

REPORT INFORMATION
  Report Type: Spontaneous
  Country: JP (occurrence: JP)
  Receive Date: 20170109
  Receipt Date: 20170417
  Transmission Date: 20170830
  Serious: Yes (Disabling)
  Sender: FDA-Public Use
  Company Number: JP-TEVA-201612_00000036

PATIENT
  Age: 14 Year
  Sex: Male
  Weight: 49 kg

DRUGS (8)
  1. LEUNASE [Suspect]
     Active Substance: ASPARAGINASE
     Indication: B PRECURSOR TYPE ACUTE LEUKAEMIA
     Route: 065
  2. LEUNASE [Suspect]
     Active Substance: ASPARAGINASE
     Route: 065
  3. DEXAMETHASONE. [Suspect]
     Active Substance: DEXAMETHASONE
     Dosage: 60 MG/M2, UNK
     Route: 065
  4. PREDNISOLONE TABLETS 5MG. [Suspect]
     Active Substance: PREDNISOLONE
     Indication: B PRECURSOR TYPE ACUTE LEUKAEMIA
     Route: 065
  5. LEUNASE [Suspect]
     Active Substance: ASPARAGINASE
     Route: 065
  6. DEXAMETHASONE. [Suspect]
     Active Substance: DEXAMETHASONE
     Dosage: 60 MG/M2, UNK
     Route: 065
  7. DEXAMETHASONE. [Suspect]
     Active Substance: DEXAMETHASONE
     Indication: B PRECURSOR TYPE ACUTE LEUKAEMIA
     Dosage: 60 MG/M2, UNK
     Route: 065
  8. DEXAMETHASONE. [Suspect]
     Active Substance: DEXAMETHASONE
     Dosage: 60 MG/M2, UNK
     Route: 065

REACTIONS (3)
  - Neutrophil count decreased [Unknown]
  - Diabetes mellitus [Not Recovered/Not Resolved]
  - Hyperlipidaemia [Unknown]
